FAERS Safety Report 20773033 (Version 1)
Quarter: 2022Q2

REPORT INFORMATION
  Report Type: Report from Study
  Country: GB (occurrence: GB)
  Receive Date: 20220502
  Receipt Date: 20220502
  Transmission Date: 20220721
  Serious: Yes (Death, Other)
  Sender: FDA-Public Use
  Company Number: GB-CELGENE-GBR-20220302991

PATIENT
  Age: 58 Year
  Sex: Male
  Weight: 78 kg

DRUGS (2)
  1. LENALIDOMIDE [Suspect]
     Active Substance: LENALIDOMIDE
     Indication: Diffuse large B-cell lymphoma
     Dosage: 21 DAYS ON AND 7 DAYS OFF
     Route: 048
     Dates: start: 20220303, end: 20220305
  2. TAFASITAMAB [Concomitant]
     Active Substance: TAFASITAMAB
     Indication: Diffuse large B-cell lymphoma
     Dosage: ONCE
     Route: 042
     Dates: start: 20220303, end: 20220305

REACTIONS (1)
  - Malignant neoplasm progression [Fatal]

NARRATIVE: CASE EVENT DATE: 20220307
